FAERS Safety Report 6546218-3 (Version None)
Quarter: 2010Q1

REPORT INFORMATION
  Report Type: 
  Country: None (occurrence: None)
  Receive Date: 20100122
  Receipt Date: 20100112
  Transmission Date: 20100710
  Serious: Yes (Hospitalization)
  Sender: FDA-Public Use
  Company Number: US-SOLVAY-00210000197

PATIENT
  Age: 51 Year
  Sex: Male
  Weight: 104.54 kg

DRUGS (9)
  1. LIPITOR [Concomitant]
     Indication: BLOOD CHOLESTEROL INCREASED
     Dosage: DAILY DOSE: 80 MILLIGRAM(S)
     Route: 048
  2. ANDROGEL [Suspect]
     Indication: BLOOD TESTOSTERONE DECREASED
     Dosage: DAILY DOSE: 5 GRAM(S), VIA PUMP
     Route: 062
     Dates: start: 20080101, end: 20080101
  3. ANDROGEL [Suspect]
     Dosage: DAILY DOSE: 2.5 GRAM(S), VIA PUMP
     Route: 062
     Dates: start: 20080101, end: 20080101
  4. ANDROGEL [Suspect]
     Dosage: DAILY DOSE: 5 GRAM(S), VIA PUMP
     Route: 062
     Dates: start: 20080101, end: 20090701
  5. ANDROGEL [Suspect]
     Dosage: DAILY DOSE: 6.25 GRAM(S), VIA PUMP
     Route: 062
     Dates: start: 20090701, end: 20090801
  6. ANDROGEL [Suspect]
     Dosage: DAILY DOSE: 2.5 GRAM(S), VIA PUMP
     Route: 062
     Dates: start: 20091001
  7. ANDROGEL [Suspect]
     Dosage: DAILY DOSE: 5 GRAM(S), VIA PUMP
     Route: 062
     Dates: end: 20100101
  8. ANDROGEL [Suspect]
     Dosage: DAILY DOSE: 7.5 GRAM(S), VIA PUMP
     Route: 062
     Dates: start: 20100101
  9. METOPROLOL [Concomitant]
     Indication: HYPERTENSION
     Dosage: DAILY DOSE: 25 MILLIGRAM(S)
     Route: 048

REACTIONS (2)
  - MYOCARDIAL INFARCTION [None]
  - NERVOUSNESS [None]
